FAERS Safety Report 10802129 (Version 3)
Quarter: 2015Q3

REPORT INFORMATION
  Report Type: Report from Study
  Country: JP (occurrence: JP)
  Receive Date: 20150217
  Receipt Date: 20150828
  Transmission Date: 20151125
  Serious: Yes (Other)
  Sender: FDA-Public Use
  Company Number: JP-JNJFOC-20150206727

PATIENT
  Age: 69 Year
  Sex: Male
  Weight: 58 kg

DRUGS (29)
  1. THYRADIN-S [Concomitant]
     Active Substance: LEVOTHYROXINE
     Indication: HYPOTHYROIDISM
     Route: 048
  2. WARFARIN [Concomitant]
     Active Substance: WARFARIN
     Indication: PROTHROMBIN LEVEL ABNORMAL
     Route: 048
     Dates: start: 20141008, end: 20141113
  3. TEPRENONE [Concomitant]
     Active Substance: TEPRENONE
     Indication: PROPHYLAXIS
     Route: 048
     Dates: start: 20140709
  4. WARFARIN [Concomitant]
     Active Substance: WARFARIN
     Indication: PROTHROMBIN LEVEL ABNORMAL
     Route: 048
     Dates: start: 20141114, end: 20141202
  5. REBAMIPIDE [Concomitant]
     Active Substance: REBAMIPIDE
     Indication: PROPHYLAXIS
     Route: 048
     Dates: start: 20140709, end: 20140709
  6. FEBURIC [Concomitant]
     Active Substance: FEBUXOSTAT
     Indication: BLOOD URIC ACID
     Route: 048
     Dates: start: 20140806
  7. TRAZENTA [Concomitant]
     Active Substance: LINAGLIPTIN
     Route: 048
  8. RIBAVIRIN. [Suspect]
     Active Substance: RIBAVIRIN
     Indication: CHRONIC HEPATITIS C
     Route: 048
     Dates: start: 20140903, end: 20140930
  9. RIBAVIRIN. [Suspect]
     Active Substance: RIBAVIRIN
     Indication: CHRONIC HEPATITIS C
     Route: 048
     Dates: start: 20141001, end: 20141007
  10. PEGINTRON [Suspect]
     Active Substance: PEGINTERFERON ALFA-2B
     Indication: CHRONIC HEPATITIS C
     Route: 058
     Dates: start: 20140709, end: 20140709
  11. METGLUCO [Concomitant]
     Active Substance: METFORMIN HYDROCHLORIDE
     Route: 048
  12. LASIX [Concomitant]
     Active Substance: FUROSEMIDE
     Route: 048
  13. TAKEPRON [Concomitant]
     Active Substance: LANSOPRAZOLE
     Indication: PROPHYLAXIS
     Route: 048
  14. WARFARIN [Concomitant]
     Active Substance: WARFARIN
     Indication: PROTHROMBIN LEVEL ABNORMAL
     Route: 048
     Dates: end: 20140805
  15. L-CARTIN [Concomitant]
     Active Substance: LEVOCARNITINE HYDROCHLORIDE
     Indication: PROPHYLAXIS
     Route: 048
     Dates: start: 20140709
  16. PEGINTRON [Suspect]
     Active Substance: PEGINTERFERON ALFA-2B
     Indication: CHRONIC HEPATITIS C
     Route: 058
     Dates: start: 20140716
  17. PEGINTRON [Suspect]
     Active Substance: PEGINTERFERON ALFA-2B
     Indication: CHRONIC HEPATITIS C
     Route: 058
     Dates: start: 20140716
  18. WARFARIN [Concomitant]
     Active Substance: WARFARIN
     Indication: PROTHROMBIN LEVEL ABNORMAL
     Route: 048
     Dates: start: 20140806, end: 20140807
  19. LOXOPROFEN [Concomitant]
     Active Substance: LOXOPROFEN
     Indication: PROPHYLAXIS
     Route: 048
     Dates: start: 20140709, end: 20140709
  20. MIYA-BM [Concomitant]
     Active Substance: CLOSTRIDIUM BUTYRICUM SPORES STRAIN M-55
     Indication: PROPHYLAXIS
     Route: 048
  21. SOVRIAD [Suspect]
     Active Substance: SIMEPREVIR
     Indication: CHRONIC HEPATITIS C
     Route: 048
     Dates: start: 20140709, end: 20140930
  22. RIBAVIRIN. [Suspect]
     Active Substance: RIBAVIRIN
     Indication: CHRONIC HEPATITIS C
     Route: 048
     Dates: start: 20140709, end: 20140902
  23. URSO [Concomitant]
     Active Substance: URSODIOL
     Indication: CHRONIC HEPATITIS C
     Route: 048
  24. LOCHOL [Concomitant]
     Active Substance: FLUVASTATIN SODIUM
     Indication: PROPHYLAXIS
     Route: 048
     Dates: start: 20140709
  25. WARFARIN [Concomitant]
     Active Substance: WARFARIN
     Indication: PROTHROMBIN LEVEL ABNORMAL
     Route: 048
     Dates: start: 20141212
  26. WARFARIN [Concomitant]
     Active Substance: WARFARIN
     Indication: PROTHROMBIN LEVEL ABNORMAL
     Route: 048
     Dates: start: 20141002, end: 20141007
  27. WARFARIN [Concomitant]
     Active Substance: WARFARIN
     Indication: PROTHROMBIN LEVEL ABNORMAL
     Route: 048
     Dates: start: 20140919, end: 20140930
  28. WARFARIN [Concomitant]
     Active Substance: WARFARIN
     Indication: PROTHROMBIN LEVEL ABNORMAL
     Route: 048
     Dates: start: 20140808, end: 20140918
  29. WARFARIN [Concomitant]
     Active Substance: WARFARIN
     Indication: PROTHROMBIN LEVEL ABNORMAL
     Route: 048
     Dates: start: 20141203, end: 20141211

REACTIONS (7)
  - Anaemia [Recovered/Resolved]
  - Prothrombin level abnormal [Not Recovered/Not Resolved]
  - Brain natriuretic peptide increased [Not Recovered/Not Resolved]
  - Blood uric acid increased [Not Recovered/Not Resolved]
  - Glycosylated haemoglobin increased [Not Recovered/Not Resolved]
  - Blood glucose increased [Not Recovered/Not Resolved]
  - Platelet count decreased [Not Recovered/Not Resolved]

NARRATIVE: CASE EVENT DATE: 20140716
